FAERS Safety Report 23567289 (Version 2)
Quarter: 2024Q1

REPORT INFORMATION
  Report Type: Spontaneous
  Country: US (occurrence: US)
  Receive Date: 20240226
  Receipt Date: 20240307
  Transmission Date: 20240410
  Serious: No
  Sender: FDA-Public Use
  Company Number: US-VERTEX PHARMACEUTICALS-2024-003095

PATIENT
  Age: 2 Year
  Sex: Female

DRUGS (2)
  1. TRIKAFTA [Suspect]
     Active Substance: ELEXACAFTOR\IVACAFTOR\TEZACAFTOR
     Indication: Cystic fibrosis
     Dosage: 1 PCKT  AM AND 1 PCKT PM
     Route: 048
     Dates: start: 20231208
  2. TRIKAFTA [Suspect]
     Active Substance: ELEXACAFTOR\IVACAFTOR\TEZACAFTOR
     Dosage: SWITCHED AM AND PM DOSES
     Route: 048

REACTIONS (1)
  - Sleep disorder [Recovering/Resolving]

NARRATIVE: CASE EVENT DATE: 20231201
